FAERS Safety Report 6536770-6 (Version None)
Quarter: 2010Q1

REPORT INFORMATION
  Report Type: 
  Country: None (occurrence: None)
  Receive Date: 20100113
  Receipt Date: 20100104
  Transmission Date: 20100710
  Serious: Yes (Hospitalization)
  Sender: FDA-Public Use
  Company Number: BR-ABBOTT-09P-020-0605490-00

PATIENT
  Sex: Male
  Weight: 80 kg

DRUGS (5)
  1. HUMIRA [Suspect]
     Indication: RHEUMATOID ARTHRITIS
     Route: 058
     Dates: start: 20060301, end: 20090701
  2. METHOTREXATE [Concomitant]
     Indication: RHEUMATOID ARTHRITIS
     Route: 048
     Dates: start: 20000101, end: 20090616
  3. FOLIC ACID [Concomitant]
     Indication: PROPHYLAXIS
     Route: 048
  4. FOLIC ACID [Concomitant]
     Indication: LIVER DISORDER
  5. FOLIC ACID [Concomitant]
     Indication: RENAL DISORDER

REACTIONS (10)
  - ANAEMIA HAEMOLYTIC AUTOIMMUNE [None]
  - DRY SKIN [None]
  - ERYTHEMA [None]
  - HAEMOGLOBIN DECREASED [None]
  - PNEUMONITIS [None]
  - PRURITUS [None]
  - PULMONARY FIBROSIS [None]
  - PYREXIA [None]
  - RENAL DISORDER [None]
  - SYNCOPE [None]
